FAERS Safety Report 4364032-4 (Version None)
Quarter: 2004Q2

REPORT INFORMATION
  Report Type: 
  Country: None (occurrence: None)
  Receive Date: 20040520
  Receipt Date: 20040520
  Transmission Date: 20050107
  Serious: Yes (Hospitalization)
  Sender: FDA-Public Use
  Company Number: None

PATIENT
  Sex: Male
  Weight: 40.5062 kg

DRUGS (16)
  1. WARFARIN SODIUM [Suspect]
     Indication: ARTERIAL BYPASS OPERATION
     Dosage: 5 MG MON,WED, FR ORAL
     Route: 048
     Dates: start: 20030925, end: 20031006
  2. WARFARIN SODIUM [Suspect]
     Indication: ARTERIAL BYPASS OPERATION
     Dosage: 2.5 MG TU,TH,SAT, ORAL
     Route: 048
     Dates: start: 20030925, end: 20031006
  3. VANCOMYCIN [Concomitant]
  4. MORPHINE SULFATE [Concomitant]
  5. INSULIN REGULAR-HUMAN-SLIDING SCALE [Concomitant]
  6. PANTROPRAZOLE [Concomitant]
  7. PIPERACILLIN /TAZOBACTAM [Concomitant]
  8. GATIFLOXACIN [Concomitant]
  9. GLIPIZIDE [Concomitant]
  10. METFORMIN HCL [Concomitant]
  11. IPRATROPIUM BR [Concomitant]
  12. ALBUTEROL [Concomitant]
  13. METOCLOPRAMIDE HCL [Concomitant]
  14. LASIX [Concomitant]
  15. RABERPRAZOLE [Concomitant]
  16. LOPERAMIDE HCL [Concomitant]

REACTIONS (3)
  - HAEMATOCRIT DECREASED [None]
  - INTERNATIONAL NORMALISED RATIO INCREASED [None]
  - POST PROCEDURAL HAEMORRHAGE [None]
